FAERS Safety Report 7229238-5 (Version None)
Quarter: 2011Q1

REPORT INFORMATION
  Report Type: 
  Country: None (occurrence: None)
  Receive Date: 20110117
  Receipt Date: 20110104
  Transmission Date: 20110831
  Serious: No
  Sender: FDA-Public Use
  Company Number: US-ELI_LILLY_AND_COMPANY-US201101001281

PATIENT
  Sex: Female

DRUGS (10)
  1. HUMALOG [Concomitant]
     Indication: DIABETES MELLITUS
  2. CYMBALTA [Suspect]
     Dosage: 40 MG, UNK
     Dates: start: 20101101
  3. XANAX [Concomitant]
     Dosage: 0.5 D/F, UNK
  4. CYMBALTA [Suspect]
     Indication: ANXIETY
     Dosage: 60 MG, UNK
     Dates: end: 20101101
  5. HUMALIN [Concomitant]
     Indication: DIABETES MELLITUS
  6. SIMVASTATIN [Concomitant]
     Indication: BLOOD CHOLESTEROL
     Dosage: 20 MG, UNK
  7. GLUCOPHAGE [Concomitant]
     Indication: DIABETES MELLITUS
     Dosage: 500 D/F, UNK
  8. REMERON [Concomitant]
     Dosage: 30 D/F, UNK
  9. AMBIEN CR [Concomitant]
     Dosage: 12.5 D/F, UNK
  10. ALESSE [Concomitant]

REACTIONS (9)
  - GLYCOSYLATED HAEMOGLOBIN INCREASED [None]
  - HEADACHE [None]
  - ALANINE AMINOTRANSFERASE INCREASED [None]
  - VITAMIN D DECREASED [None]
  - BLOOD CHOLESTEROL INCREASED [None]
  - ASPARTATE AMINOTRANSFERASE INCREASED [None]
  - PARAESTHESIA ORAL [None]
  - PARAESTHESIA [None]
  - BLOOD GLUCOSE INCREASED [None]
